FAERS Safety Report 21753317 (Version 2)
Quarter: 2023Q1

REPORT INFORMATION
  Report Type: Spontaneous
  Country: US (occurrence: US)
  Receive Date: 20221220
  Receipt Date: 20230104
  Transmission Date: 20230418
  Serious: No
  Sender: FDA-Public Use
  Company Number: US-ALKERMES INC.-ALK-2022-006012

PATIENT
  Age: 39 Year
  Sex: Male

DRUGS (1)
  1. ARISTADA [Suspect]
     Active Substance: ARIPIPRAZOLE LAUROXIL
     Indication: Product used for unknown indication
     Dosage: 882 MILLIGRAM
     Route: 030

REACTIONS (4)
  - Discomfort [Unknown]
  - Needle issue [Recovered/Resolved]
  - Incorrect dose administered [Unknown]
  - Therapeutic response shortened [Unknown]
